FAERS Safety Report 4802035-3 (Version None)
Quarter: 2005Q4

REPORT INFORMATION
  Report Type: 
  Country: None (occurrence: None)
  Receive Date: 20051011
  Receipt Date: 20050927
  Transmission Date: 20060501
  Serious: Yes (Other)
  Sender: FDA-Public Use
  Company Number: 2005135718

PATIENT
  Sex: Female
  Weight: 94.8018 kg

DRUGS (3)
  1. ZOLOFT [Suspect]
     Indication: MAJOR DEPRESSION
     Dosage: 100 MG (100 MG, 1 IN 1 D), ORAL; 100 MG (100 MG, 1 IN 1 D), ORAL; 100 MG (100 MG, 1 IN 1 D), ORAL
     Route: 048
     Dates: start: 19960801, end: 20030901
  2. ZOLOFT [Suspect]
     Indication: MAJOR DEPRESSION
     Dosage: 100 MG (100 MG, 1 IN 1 D), ORAL; 100 MG (100 MG, 1 IN 1 D), ORAL; 100 MG (100 MG, 1 IN 1 D), ORAL
     Route: 048
     Dates: start: 20030901
  3. LISINOPRIL W/HYDROCHLOROTHIAZIDE (HYDROCHLOROTHIAZIDE, LISINOPRIL) [Concomitant]

REACTIONS (7)
  - CIRCADIAN RHYTHM SLEEP DISORDER [None]
  - DIABETES MELLITUS [None]
  - EOSINOPHIL COUNT INCREASED [None]
  - FATIGUE [None]
  - GASTRIC BANDING [None]
  - LETHARGY [None]
  - SOMNOLENCE [None]
